FAERS Safety Report 13374596 (Version 1)
Quarter: 2017Q1

REPORT INFORMATION
  Report Type: Spontaneous
  Country: US (occurrence: US)
  Receive Date: 20170327
  Receipt Date: 20170327
  Transmission Date: 20170429
  Serious: Yes (Death, Hospitalization, Disabling, Other)
  Sender: FDA-Public Use
  Company Number: US-PFIZER INC-2017120806

PATIENT
  Age: 54 Year
  Sex: Male

DRUGS (24)
  1. GANCICLOVIR. [Concomitant]
     Active Substance: GANCICLOVIR
     Dosage: UNK
     Dates: start: 201606, end: 201607
  2. JAKAFI [Suspect]
     Active Substance: RUXOLITINIB
     Indication: GRAFT VERSUS HOST DISEASE
     Dosage: 5 MG, 2X/DAY
     Route: 048
     Dates: start: 201606, end: 20160831
  3. POTASSIUM CHLORIDE. [Concomitant]
     Active Substance: POTASSIUM CHLORIDE
  4. GANCICLOVIR. [Concomitant]
     Active Substance: GANCICLOVIR
     Dosage: UNK
     Dates: start: 201608, end: 201608
  5. FLURAZEPAM [Concomitant]
     Active Substance: FLURAZEPAM\FLURAZEPAM HYDROCHLORIDE
     Dosage: UNK
  6. VALGANCICLOVIR. [Concomitant]
     Active Substance: VALGANCICLOVIR
     Dosage: UNK
  7. LANSOPRAZOLE. [Concomitant]
     Active Substance: LANSOPRAZOLE
  8. COLCHICINE. [Concomitant]
     Active Substance: COLCHICINE
  9. VALACICLOVIR HYDROCHLORIDE [Concomitant]
     Active Substance: VALACYCLOVIR HYDROCHLORIDE
     Dosage: 500 MG, 2X/DAY
     Route: 048
  10. PRAMIPEXOLE. [Concomitant]
     Active Substance: PRAMIPEXOLE
  11. QUETIAPINE. [Concomitant]
     Active Substance: QUETIAPINE
     Dosage: UNK
  12. TACROLIMUS. [Concomitant]
     Active Substance: TACROLIMUS
     Dosage: UNK
     Dates: start: 201608
  13. VALTREX [Concomitant]
     Active Substance: VALACYCLOVIR HYDROCHLORIDE
     Dosage: UNK
     Dates: start: 201606
  14. CANCIDAS [Concomitant]
     Active Substance: CASPOFUNGIN ACETATE
     Dosage: UNK
  15. PREDNISONE. [Concomitant]
     Active Substance: PREDNISONE
     Dosage: UNK
     Dates: start: 20160809
  16. TACROLIMUS. [Concomitant]
     Active Substance: TACROLIMUS
     Dosage: UNK
     Dates: end: 201608
  17. GANCICLOVIR. [Concomitant]
     Active Substance: GANCICLOVIR
     Dosage: UNK UNK, 2X/DAY
     Route: 042
     Dates: start: 201605, end: 201606
  18. VALTREX [Concomitant]
     Active Substance: VALACYCLOVIR HYDROCHLORIDE
     Dosage: UNK
     Dates: start: 201507, end: 201606
  19. HYDROMORPHONE [Concomitant]
     Active Substance: HYDROMORPHONE
     Dosage: UNK
  20. GANCICLOVIR. [Concomitant]
     Active Substance: GANCICLOVIR
     Dosage: UNK, DAILY
     Dates: start: 20160610
  21. INFLIXIMAB [Concomitant]
     Active Substance: INFLIXIMAB
     Dosage: UNK
     Dates: start: 2015
  22. FOSCARNET SODIUM. [Suspect]
     Active Substance: FOSCARNET SODIUM
     Indication: CYTOMEGALOVIRUS TEST POSITIVE
     Dosage: UNK
     Dates: start: 201605
  23. JAKAFI [Suspect]
     Active Substance: RUXOLITINIB
     Dosage: UNK
     Dates: end: 20161019
  24. FENTANYL. [Concomitant]
     Active Substance: FENTANYL
     Dosage: UNK

REACTIONS (42)
  - Parkinson^s disease [Unknown]
  - Haemoglobin decreased [Unknown]
  - Gastrointestinal disorder [Recovered/Resolved]
  - Dry throat [Unknown]
  - Failure to thrive [Fatal]
  - Hypogammaglobulinaemia [Unknown]
  - Spinal fracture [Unknown]
  - Neutropenia [Unknown]
  - Eye symptom [Unknown]
  - Anaemia [Not Recovered/Not Resolved]
  - Diarrhoea [Recovered/Resolved]
  - Osteomyelitis [Unknown]
  - Bacteraemia [Unknown]
  - Haematocrit decreased [Unknown]
  - Full blood count decreased [Recovering/Resolving]
  - Decreased appetite [Not Recovered/Not Resolved]
  - Gout [Unknown]
  - Mental disorder [Unknown]
  - Nausea [Not Recovered/Not Resolved]
  - Fatigue [Not Recovered/Not Resolved]
  - Candida infection [Unknown]
  - White blood cell count decreased [Recovered/Resolved]
  - Peripheral swelling [Unknown]
  - Confusional state [Not Recovered/Not Resolved]
  - Hypotension [Unknown]
  - Gastric ulcer [Unknown]
  - Hypokalaemia [Recovering/Resolving]
  - Leukopenia [Unknown]
  - Weight decreased [Not Recovered/Not Resolved]
  - Myopathy [Unknown]
  - Retching [Not Recovered/Not Resolved]
  - Hyporesponsive to stimuli [Unknown]
  - Graft versus host disease [Fatal]
  - Blood magnesium decreased [Recovering/Resolving]
  - Thrombocytopenia [Not Recovered/Not Resolved]
  - Swelling [Recovered/Resolved]
  - Liver function test increased [Unknown]
  - Muscular weakness [Not Recovered/Not Resolved]
  - Oedema peripheral [Unknown]
  - Cytomegalovirus test positive [Recovered/Resolved]
  - Peripheral sensory neuropathy [Not Recovered/Not Resolved]
  - Weight bearing difficulty [Not Recovered/Not Resolved]

NARRATIVE: CASE EVENT DATE: 2016
